FAERS Safety Report 11280230 (Version 1)
Quarter: 2015Q3

REPORT INFORMATION
  Report Type: Spontaneous
  Country: US (occurrence: US)
  Receive Date: 20150717
  Receipt Date: 20150717
  Transmission Date: 20151125
  Serious: Yes (Other)
  Sender: FDA-Public Use
  Company Number: US-JNJFOC-20140317408

PATIENT
  Age: 45 Year
  Sex: Male

DRUGS (1)
  1. CLADRIBINE. [Suspect]
     Active Substance: CLADRIBINE
     Indication: LANGERHANS^ CELL HISTIOCYTOSIS
     Route: 042

REACTIONS (3)
  - Inappropriate schedule of drug administration [Unknown]
  - Product use issue [Unknown]
  - Thrombocytopenia [Recovering/Resolving]
